FAERS Safety Report 16271655 (Version 2)
Quarter: 2019Q3

REPORT INFORMATION
  Report Type: Spontaneous
  Country: FR (occurrence: FR)
  Receive Date: 20190503
  Receipt Date: 20190828
  Transmission Date: 20191004
  Serious: Yes (Other)
  Sender: FDA-Public Use
  Company Number: FR-TAKEDA-2019TUS026919

PATIENT
  Sex: Female

DRUGS (1)
  1. ENTYVIO [Suspect]
     Active Substance: VEDOLIZUMAB
     Indication: PRODUCT USED FOR UNKNOWN INDICATION
     Dosage: UNK
     Route: 042
     Dates: start: 20180703, end: 20190426

REACTIONS (4)
  - Vestibular neuronitis [Recovering/Resolving]
  - Treatment failure [Unknown]
  - Vertigo [Recovering/Resolving]
  - Deafness [Not Recovered/Not Resolved]

NARRATIVE: CASE EVENT DATE: 201902
